FAERS Safety Report 18073765 (Version 1)
Quarter: 2020Q3

REPORT INFORMATION
  Report Type: Spontaneous
  Country: FR (occurrence: FR)
  Receive Date: 20200727
  Receipt Date: 20200727
  Transmission Date: 20201103
  Serious: Yes (Hospitalization)
  Sender: FDA-Public Use
  Company Number: FR-AVERITAS PHARMA, INC.-2020-104809

PATIENT
  Age: 32 Year
  Sex: Female

DRUGS (1)
  1. QUTENZA [Suspect]
     Active Substance: CAPSAICIN
     Indication: NEURALGIA
     Dosage: 1 DOSAGE FORM
     Route: 003
     Dates: start: 20200630, end: 20200630

REACTIONS (1)
  - Application site hyperaesthesia [Recovered/Resolved]

NARRATIVE: CASE EVENT DATE: 20200630
